FAERS Safety Report 6712657-0 (Version None)
Quarter: 2010Q2

REPORT INFORMATION
  Report Type: 
  Country: None (occurrence: None)
  Receive Date: 20100505
  Receipt Date: 20100505
  Transmission Date: 20101027
  Serious: Yes (Hospitalization)
  Sender: FDA-Public Use
  Company Number: None

PATIENT
  Age: 18 Year
  Sex: Male
  Weight: 75 kg

DRUGS (4)
  1. ANDROID 5 [Suspect]
     Indication: MUSCLE BUILDING THERAPY
     Dates: end: 20091001
  2. MILK THISTLE [Concomitant]
  3. CODEINE SULFATE [Concomitant]
  4. ADVIL [Concomitant]

REACTIONS (1)
  - PANCREATITIS [None]
